FAERS Safety Report 23895652 (Version 1)
Quarter: 2024Q2

REPORT INFORMATION
  Report Type: Spontaneous
  Country: US (occurrence: None)
  Receive Date: 20240523
  Receipt Date: 20240523
  Transmission Date: 20240715
  Serious: Yes (Disabling, Other)
  Sender: FDA-Public Use
  Company Number: None

PATIENT
  Age: 40 Year
  Sex: Male
  Weight: 92.25 kg

DRUGS (2)
  1. SUBOXONE [Suspect]
     Active Substance: BUPRENORPHINE HYDROCHLORIDE\NALOXONE HYDROCHLORIDE
     Indication: Pain
     Dosage: OTHER QUANTITY : 3 STRIP;?FREQUENCY : 3 TIMES A DAY;?OTHER ROUTE : UNDER TONGUE;?
     Route: 050
     Dates: start: 20160201, end: 20231002
  2. SUBOXONE [Suspect]
     Active Substance: BUPRENORPHINE HYDROCHLORIDE\NALOXONE HYDROCHLORIDE
     Indication: Dependence

REACTIONS (6)
  - Tooth loss [None]
  - Dental caries [None]
  - Toothache [None]
  - Pain [None]
  - Emotional distress [None]
  - Crying [None]

NARRATIVE: CASE EVENT DATE: 20160201
